FAERS Safety Report 15314745 (Version 1)
Quarter: 2018Q3

REPORT INFORMATION
  Report Type: Report from Study
  Country: RU (occurrence: RU)
  Receive Date: 20180824
  Receipt Date: 20180824
  Transmission Date: 20181010
  Serious: Yes (Hospitalization, Other)
  Sender: FDA-Public Use
  Company Number: RU-ASTRAZENECA-2018SE92067

PATIENT
  Age: 61 Year
  Sex: Female
  Weight: 60 kg

DRUGS (8)
  1. ATORIS [Concomitant]
     Active Substance: ATORVASTATIN CALCIUM
  2. BRILINTA [Suspect]
     Active Substance: TICAGRELOR
     Indication: ACUTE CORONARY SYNDROME
     Route: 048
     Dates: start: 201611
  3. INDAPAMIDE. [Concomitant]
     Active Substance: INDAPAMIDE
  4. PERINDOPRIL [Concomitant]
     Active Substance: PERINDOPRIL
  5. CONCOR [Concomitant]
     Active Substance: BISOPROLOL FUMARATE
  6. CO?PERINEVA [Concomitant]
  7. OMEZ [Concomitant]
     Active Substance: OMEPRAZOLE
  8. THROMBO ASS [Concomitant]
     Active Substance: ASPIRIN

REACTIONS (5)
  - Back pain [Unknown]
  - Vascular occlusion [Unknown]
  - Intentional product misuse [Not Recovered/Not Resolved]
  - Osteochondrosis [Unknown]
  - Angina pectoris [Unknown]

NARRATIVE: CASE EVENT DATE: 201711
